FAERS Safety Report 14398799 (Version 2)
Quarter: 2018Q1

REPORT INFORMATION
  Report Type: Report from Study
  Country: None (occurrence: RO)
  Receive Date: 20180117
  Receipt Date: 20180310
  Transmission Date: 20180509
  Serious: Yes (Hospitalization)
  Sender: FDA-Public Use
  Company Number: RO-ABBVIE-18S-135-2221550-00

PATIENT
  Age: 44 Year
  Sex: Female

DRUGS (10)
  1. EXVIERA [Suspect]
     Active Substance: DASABUVIR
     Indication: HEPATIC CIRRHOSIS
  2. CLONIDINE. [Concomitant]
     Active Substance: CLONIDINE
     Indication: HYPERTENSION
     Route: 048
  3. CARVEDILOL. [Concomitant]
     Active Substance: CARVEDILOL
     Indication: HYPERTENSION
     Route: 048
  4. ENAP [Concomitant]
     Active Substance: ENALAPRIL
     Indication: HYPERTENSION
     Route: 048
  5. VIEKIRAX [Suspect]
     Active Substance: OMBITASVIR\PARITAPREVIR\RITONAVIR
     Indication: HEPATIC CIRRHOSIS
  6. TERTENSIF [Concomitant]
     Active Substance: INDAPAMIDE
     Indication: HYPERTENSION
     Route: 048
  7. ATACAND [Concomitant]
     Active Substance: CANDESARTAN CILEXETIL
     Indication: HYPERTENSION
     Route: 048
  8. METOPROLOL. [Concomitant]
     Active Substance: METOPROLOL
     Indication: HYPERTENSION
     Route: 048
  9. EXVIERA [Suspect]
     Active Substance: DASABUVIR
     Indication: HEPATITIS C
     Route: 048
     Dates: start: 20170921, end: 20171213
  10. VIEKIRAX [Suspect]
     Active Substance: OMBITASVIR\PARITAPREVIR\RITONAVIR
     Indication: HEPATITIS C
     Route: 048
     Dates: start: 20170921, end: 20171213

REACTIONS (10)
  - Cryoglobulins present [Not Recovered/Not Resolved]
  - Blood pressure increased [Recovering/Resolving]
  - Vomiting [Recovered/Resolved]
  - Headache [Recovered/Resolved]
  - Oedema peripheral [Not Recovered/Not Resolved]
  - Dyspnoea [Recovered/Resolved]
  - Dry mouth [Not Recovered/Not Resolved]
  - Hypertension [Recovering/Resolving]
  - Vasculitis [Not Recovered/Not Resolved]
  - Immunoglobulins decreased [Not Recovered/Not Resolved]

NARRATIVE: CASE EVENT DATE: 20180108
